FAERS Safety Report 14465816 (Version 2)
Quarter: 2018Q2

REPORT INFORMATION
  Report Type: Spontaneous
  Country: US (occurrence: US)
  Receive Date: 20180131
  Receipt Date: 20180422
  Transmission Date: 20180711
  Serious: Yes (Hospitalization, Other)
  Sender: FDA-Public Use
  Company Number: US-APOTEX-2018AP006168

PATIENT
  Age: 29 Year
  Sex: Male

DRUGS (2)
  1. VALPROIC ACID. [Suspect]
     Active Substance: VALPROIC ACID
     Indication: AFFECTIVE DISORDER
     Dosage: UNK
     Route: 065
  2. ERTAPENEM. [Suspect]
     Active Substance: ERTAPENEM SODIUM
     Indication: TOXICITY TO VARIOUS AGENTS
     Dosage: 1 G, ONE DOSE
     Route: 042

REACTIONS (11)
  - Hyperkalaemia [Recovering/Resolving]
  - Mental status changes [Recovering/Resolving]
  - Hypernatraemia [Recovering/Resolving]
  - Drug level increased [Recovering/Resolving]
  - Hypocalcaemia [Recovering/Resolving]
  - Hyperammonaemia [Recovering/Resolving]
  - Drug interaction [Unknown]
  - Lactic acidosis [Recovering/Resolving]
  - Anion gap increased [Recovering/Resolving]
  - Toxicity to various agents [Unknown]
  - Overdose [Unknown]
